FAERS Safety Report 5001628-0 (Version None)
Quarter: 2006Q2

REPORT INFORMATION
  Report Type: 
  Country: None (occurrence: None)
  Receive Date: 20060511
  Receipt Date: 20060511
  Transmission Date: 20061013
  Serious: Yes (Hospitalization, Other)
  Sender: FDA-Public Use
  Company Number: None

PATIENT
  Sex: Female
  Weight: 78 kg

DRUGS (3)
  1. CYCLOPHOSPHAMIDE [Suspect]
     Indication: BREAST CANCER
     Dosage: 770 MG
     Dates: start: 20060427
  2. TAXOTERE [Suspect]
     Dosage: 96 MG
     Dates: start: 20060427
  3. DOXORUBICIN HCL [Suspect]
     Dosage: 77 MG
     Dates: start: 20060427

REACTIONS (7)
  - BLOOD SODIUM DECREASED [None]
  - COLITIS [None]
  - DEHYDRATION [None]
  - DIARRHOEA [None]
  - HAEMOGLOBIN DECREASED [None]
  - RECTAL HAEMORRHAGE [None]
  - WHITE BLOOD CELL COUNT DECREASED [None]
